FAERS Safety Report 4628148-7 (Version None)
Quarter: 2005Q2

REPORT INFORMATION
  Report Type: 
  Country: None (occurrence: None)
  Receive Date: 20050404
  Receipt Date: 20050322
  Transmission Date: 20051028
  Serious: Yes (Hospitalization, Other)
  Sender: FDA-Public Use
  Company Number: 2005043791

PATIENT
  Age: 74 Year
  Sex: Female

DRUGS (13)
  1. ZYRTEC [Suspect]
     Indication: RHINITIS ALLERGIC
     Dosage: 10 MG (10 MG, 1 IN 1 D), ORAL
     Route: 048
     Dates: start: 20041228, end: 20050301
  2. CLONAZEPAM [Suspect]
     Indication: DEPRESSION
     Dosage: 0.5 MG (0.5 MG, 1 IN 1 D), ORAL
     Route: 048
     Dates: start: 20031208, end: 20050301
  3. VOGLIBOSE (VOGLIBOSE) [Suspect]
     Indication: ILL-DEFINED DISORDER
     Dosage: ORAL
     Route: 048
     Dates: end: 20050228
  4. TEPRENONE (TEPRENONE) [Concomitant]
  5. MAGNESIUM OXIDE (MAGNESIUM OXIDE) [Concomitant]
  6. ALL OTHER THERAPEUTIC PRODUCTS (ALL OTHER THERAPEUTIC PRODUCTS) [Concomitant]
  7. NITRAZEPAM [Concomitant]
  8. ETIZOLAM (ETIZOLAM) [Concomitant]
  9. FLUNITRAZEPAM (FLUNITRAZEPAM) [Concomitant]
  10. ALPRAZOLAM [Concomitant]
  11. BETHANECHOL CHLORIDE (BETHANECHOL CHLORIDE) [Concomitant]
  12. SODIUM PICOSULFATE (SODIUM PICOSULFATE) [Concomitant]
  13. SENNA LEAF (SENNA LEAF) [Concomitant]

REACTIONS (5)
  - CEREBRAL INFARCTION [None]
  - HAEMOGLOBIN DECREASED [None]
  - PLATELET COUNT DECREASED [None]
  - RHINITIS ALLERGIC [None]
  - WHITE BLOOD CELL COUNT DECREASED [None]
